FAERS Safety Report 23850289 (Version 5)
Quarter: 2024Q4

REPORT INFORMATION
  Report Type: Spontaneous
  Country: IT (occurrence: IT)
  Receive Date: 20240513
  Receipt Date: 20241113
  Transmission Date: 20250114
  Serious: Yes (Other)
  Sender: MYLAN
  Company Number: IT-AMGEN-ITASP2024080824

PATIENT
  Age: 83 Year
  Sex: Male
  Weight: 78 kg

DRUGS (21)
  1. OXALIPLATIN [Suspect]
     Active Substance: OXALIPLATIN
     Indication: Colorectal cancer metastatic
     Dosage: UNK
     Route: 065
     Dates: start: 201804
  2. OXALIPLATIN [Suspect]
     Active Substance: OXALIPLATIN
     Dosage: 100 MILLIGRAM/SQ. METER, CYCLE (AT DOSES REDUCED BY 20% FOR 9 CYCLES) EVERY 14 DAYS
     Route: 042
     Dates: start: 201806
  3. OXALIPLATIN [Suspect]
     Active Substance: OXALIPLATIN
     Dosage: FOLFOX6 REGIMEN- TOTAL OF 9 CYCLES
     Route: 065
     Dates: start: 201806, end: 201812
  4. FLUOROURACIL [Suspect]
     Active Substance: FLUOROURACIL
     Indication: Colorectal cancer metastatic
     Dosage: STARTING FROM JUNE UP TO DECEMBER FOR A TOTAL OF 12 CYCLES
     Route: 065
     Dates: start: 201804
  5. FLUOROURACIL [Suspect]
     Active Substance: FLUOROURACIL
     Indication: Adenocarcinoma of colon
     Dosage: 2400 MILLIGRAM, CYCLE (AT DOSES REDUCED BY 20% FOR 9 CYCLES), EVERY 14 DAYS
     Route: 065
     Dates: start: 201806
  6. FLUOROURACIL [Suspect]
     Active Substance: FLUOROURACIL
     Indication: Metastases to lymph nodes
     Dosage: UNK
     Route: 065
     Dates: start: 202007, end: 202311
  7. FLUOROURACIL [Suspect]
     Active Substance: FLUOROURACIL
     Indication: Metastases to liver
     Dosage: FOLFOX6 REGIMEN- TOTAL OF 9 CYCLES
     Route: 065
     Dates: start: 201806, end: 201812
  8. FLUOROURACIL [Suspect]
     Active Substance: FLUOROURACIL
     Indication: Colorectal cancer metastatic
  9. PANITUMUMAB [Suspect]
     Active Substance: PANITUMUMAB
     Indication: Colorectal cancer metastatic
     Dosage: UNK
     Route: 065
     Dates: start: 201804
  10. PANITUMUMAB [Suspect]
     Active Substance: PANITUMUMAB
     Indication: Adenocarcinoma of colon
     Dosage: 6 MILLIGRAM/KILOGRAM, 12 CYCLE, EVERY 14 DAYS
     Route: 042
     Dates: start: 201806, end: 201812
  11. PANITUMUMAB [Suspect]
     Active Substance: PANITUMUMAB
     Indication: Metastases to lymph nodes
     Dosage: UNK
     Route: 065
     Dates: start: 202007, end: 202311
  12. PANITUMUMAB [Suspect]
     Active Substance: PANITUMUMAB
     Indication: Metastases to liver
     Dosage: UNK (TOTAL OF 12 CYCLES)
     Route: 065
     Dates: start: 201806, end: 201812
  13. PANITUMUMAB [Suspect]
     Active Substance: PANITUMUMAB
     Indication: Colorectal cancer metastatic
  14. FLUOROURACIL\LEUCOVORIN CALCIUM\OXALIPLATIN [Suspect]
     Active Substance: FLUOROURACIL\LEUCOVORIN CALCIUM\OXALIPLATIN
     Indication: Colorectal cancer metastatic
     Dosage: UNK ( TOTAL OF 9 CYCLES)
     Route: 065
  15. LEUCOVORIN [Suspect]
     Active Substance: LEUCOVORIN\LEUCOVORIN CALCIUM
     Indication: Colorectal cancer metastatic
     Dosage: UNK
     Route: 065
     Dates: start: 201804
  16. LEUCOVORIN [Suspect]
     Active Substance: LEUCOVORIN\LEUCOVORIN CALCIUM
     Indication: Metastases to liver
     Dosage: 100 MILLIGRAM/SQ. METER, CYCLE (AT DOSES REDUCED BY 20% FOR 9 CYCLES), EVERY 14 DAYS
     Route: 042
     Dates: start: 201806
  17. LEUCOVORIN [Suspect]
     Active Substance: LEUCOVORIN\LEUCOVORIN CALCIUM
     Indication: Metastases to lymph nodes
     Dosage: UNK (FOLFOX6 REGIMEN- TOTAL OF 9 CYCLES)
     Route: 065
     Dates: start: 201806, end: 201812
  18. LEUCOVORIN [Suspect]
     Active Substance: LEUCOVORIN\LEUCOVORIN CALCIUM
     Indication: Adenocarcinoma of colon
  19. LEUCOVORIN [Suspect]
     Active Substance: LEUCOVORIN\LEUCOVORIN CALCIUM
     Indication: Colorectal cancer metastatic
  20. TIPIRACIL HYDROCHLORIDE\TRIFLURIDINE [Suspect]
     Active Substance: TIPIRACIL HYDROCHLORIDE\TRIFLURIDINE
     Indication: Colorectal cancer metastatic
     Dosage: UNK (TOTAL OF 3 CYCLES)
     Route: 048
     Dates: start: 202003, end: 202006
  21. IRINOTECAN [Concomitant]
     Active Substance: IRINOTECAN
     Indication: Colorectal cancer metastatic
     Dosage: UNK(TOTAL OF 12 CYCLES)
     Route: 065
     Dates: start: 201907

REACTIONS (5)
  - Haematotoxicity [Unknown]
  - Drug ineffective [Unknown]
  - Rash maculo-papular [Recovering/Resolving]
  - Conjunctivitis [Recovering/Resolving]
  - Paronychia [Recovering/Resolving]

NARRATIVE: CASE EVENT DATE: 20180101
